FAERS Safety Report 13757234 (Version 1)
Quarter: 2017Q3

REPORT INFORMATION
  Report Type: Spontaneous
  Country: US (occurrence: US)
  Receive Date: 20170715
  Receipt Date: 20170715
  Transmission Date: 20171127
  Serious: Yes (Other)
  Sender: FDA-Public Use
  Company Number: None

PATIENT
  Age: 53 Year
  Weight: 72 kg

DRUGS (1)
  1. CIPROFLOXACIN. [Suspect]
     Active Substance: CIPROFLOXACIN
     Indication: UPPER RESPIRATORY TRACT INFECTION
     Dates: start: 20111101

REACTIONS (10)
  - Palpitations [None]
  - Visual impairment [None]
  - Neuropathy peripheral [None]
  - Confusional state [None]
  - Depression [None]
  - Pain [None]
  - Speech disorder [None]
  - Back pain [None]
  - Anxiety [None]
  - Breast cancer [None]

NARRATIVE: CASE EVENT DATE: 20111101
